FAERS Safety Report 14566444 (Version 2)
Quarter: 2018Q1

REPORT INFORMATION
  Report Type: Spontaneous
  Country: US (occurrence: US)
  Receive Date: 20180223
  Receipt Date: 20180302
  Transmission Date: 20180509
  Serious: Yes (Life-Threatening)
  Sender: FDA-Public Use
  Company Number: US-BAYER-2018-034683

PATIENT
  Age: 82 Year
  Sex: Female
  Weight: 73 kg

DRUGS (5)
  1. MULTIVITAMIN [Concomitant]
     Active Substance: VITAMINS
     Dosage: UNK
  2. CITRACAL MAXIMUM [Suspect]
     Active Substance: CALCIUM CITRATE\CHOLECALCIFEROL
     Dosage: 1 DF, QD
     Route: 048
  3. BAYER LOW DOSE [Suspect]
     Active Substance: ASPIRIN
     Indication: NEOPLASM PROPHYLAXIS
     Dosage: 1 DF, QD
     Route: 048
     Dates: start: 1988
  4. BAYER LOW DOSE [Suspect]
     Active Substance: ASPIRIN
     Indication: IMMUNE SYSTEM DISORDER
  5. VITAMIN D [Concomitant]
     Active Substance: CHOLECALCIFEROL
     Dosage: UNK

REACTIONS (5)
  - Foreign body in gastrointestinal tract [Recovered/Resolved]
  - Product use complaint [None]
  - Incorrect dosage administered [Unknown]
  - Choking [Recovered/Resolved]
  - Product use in unapproved indication [Unknown]

NARRATIVE: CASE EVENT DATE: 201801
